FAERS Safety Report 9297645 (Version 3)
Quarter: 2013Q3

REPORT INFORMATION
  Report Type: Spontaneous
  Country: US (occurrence: US)
  Receive Date: 20130520
  Receipt Date: 20130813
  Transmission Date: 20140515
  Serious: Yes (Other)
  Sender: FDA-Public Use
  Company Number: US-PFIZER INC-2013153510

PATIENT
  Age: 65 Year
  Sex: Male

DRUGS (2)
  1. LYRICA [Suspect]
     Indication: PAIN IN EXTREMITY
     Dosage: 50 MG, 2X/DAY
     Dates: start: 20130514
  2. LYRICA [Suspect]
     Indication: NERVE COMPRESSION
     Dosage: 225 MG, UNK

REACTIONS (3)
  - Cardiac disorder [Unknown]
  - Nerve compression [Unknown]
  - Drug ineffective [Unknown]
